FAERS Safety Report 18574573 (Version 3)
Quarter: 2020Q4

REPORT INFORMATION
  Report Type: Report from Study
  Country: CO (occurrence: CO)
  Receive Date: 20201203
  Receipt Date: 20201231
  Transmission Date: 20210114
  Serious: Yes (Other)
  Sender: FDA-Public Use
  Company Number: NVSC2020CO319834

PATIENT
  Age: 75 Year
  Sex: Male
  Weight: 52 kg

DRUGS (5)
  1. JAKAVI [Suspect]
     Active Substance: RUXOLITINIB
     Dosage: 10 MG, Q12H
     Route: 048
  2. JAKAVI [Suspect]
     Active Substance: RUXOLITINIB
     Dosage: 10 MG, Q12H
     Route: 048
     Dates: start: 202006
  3. JAKAVI [Suspect]
     Active Substance: RUXOLITINIB
     Dosage: 15 MG, Q12H
     Route: 048
     Dates: start: 202006
  4. JAKAVI [Suspect]
     Active Substance: RUXOLITINIB
     Indication: MYELOFIBROSIS
     Dosage: 15 MG, Q12H
     Route: 048
     Dates: start: 20200215, end: 202006
  5. LOSARTAN. [Suspect]
     Active Substance: LOSARTAN
     Indication: HYPERTENSION
     Dosage: UNK, QD (STARTED 1 YEAR AGO APPROXIMATELY)
     Route: 048

REACTIONS (4)
  - Laboratory test abnormal [Unknown]
  - Intervertebral disc disorder [Unknown]
  - Haemoglobin decreased [Unknown]
  - Spinal pain [Unknown]

NARRATIVE: CASE EVENT DATE: 20201004
